FAERS Safety Report 15484501 (Version 1)
Quarter: 2018Q4

REPORT INFORMATION
  Report Type: Spontaneous
  Country: US (occurrence: US)
  Receive Date: 20181010
  Receipt Date: 20181010
  Transmission Date: 20190205
  Serious: No
  Sender: FDA-Public Use
  Company Number: US-ROMARKLABS-2018-US-000031

PATIENT
  Age: 13 Year
  Sex: Male

DRUGS (2)
  1. ALINIA [Suspect]
     Active Substance: NITAZOXANIDE
     Indication: PRODUCT USED FOR UNKNOWN INDICATION
     Dosage: 1 TABLET TWICE DAILY
     Route: 048
     Dates: start: 20160816
  2. NYSTATIN. [Concomitant]
     Active Substance: NYSTATIN
     Indication: PRODUCT USED FOR UNKNOWN INDICATION
     Dosage: 2 TABLETS AT DINNER
     Route: 048

REACTIONS (6)
  - Dizziness [Unknown]
  - Feeling hot [Unknown]
  - Pruritus generalised [Unknown]
  - Throat irritation [Unknown]
  - Bowel movement irregularity [Unknown]
  - Nausea [Unknown]

NARRATIVE: CASE EVENT DATE: 20160831
